FAERS Safety Report 6056903 (Version 4)
Quarter: 2013Q3

REPORT INFORMATION
  Report Type: Spontaneous
  Country: FR (occurrence: FR)
  Receive Date: 20060602
  Receipt Date: 20130812
  Transmission Date: 20140515
  Serious: Yes (Hospitalization)
  Sender: FDA-Public Use
  Company Number: FR-BRISTOL-MYERS SQUIBB COMPANY-13387907

PATIENT
  Age: 54 Year
  Sex: Female

DRUGS (5)
  1. REYATAZ CAPS 150 MG [Suspect]
     Indication: HIV INFECTION
     Dosage: RESTARTED WITH 400MG/D
     Route: 048
     Dates: start: 2005
  2. NORVIR [Concomitant]
     Indication: HIV INFECTION
     Dates: end: 20060428
  3. ZIAGEN [Concomitant]
  4. VIREAD [Concomitant]
  5. LEVOTHYROX [Concomitant]

REACTIONS (2)
  - Renal colic [Recovered/Resolved]
  - Nephrolithiasis [Recovered/Resolved]
